FAERS Safety Report 16518303 (Version 8)
Quarter: 2022Q4

REPORT INFORMATION
  Report Type: Spontaneous
  Country: US (occurrence: US)
  Receive Date: 20190702
  Receipt Date: 20221221
  Transmission Date: 20230113
  Serious: No
  Sender: FDA-Public Use
  Company Number: US-PFIZER INC-2019278575

PATIENT
  Age: 72 Year
  Sex: Male

DRUGS (5)
  1. EUCRISA [Suspect]
     Active Substance: CRISABOROLE
     Indication: Dermatitis atopic
     Dosage: UNK
  2. EUCRISA [Suspect]
     Active Substance: CRISABOROLE
     Dosage: BID PRN
  3. EUCRISA [Suspect]
     Active Substance: CRISABOROLE
     Dosage: 2 GRAMS TO AFFECTED AREA QD PRN
  4. EUCRISA [Suspect]
     Active Substance: CRISABOROLE
     Dosage: UNK, AS NEEDED
  5. EUCRISA [Suspect]
     Active Substance: CRISABOROLE
     Dosage: 2 G, AS NEEDED (EVERY DAY AS NEEDED)

REACTIONS (2)
  - Drug ineffective [Unknown]
  - Off label use [Unknown]
